FAERS Safety Report 4475473-9 (Version None)
Quarter: 2004Q4

REPORT INFORMATION
  Report Type: 
  Country: None (occurrence: None)
  Receive Date: 20041014
  Receipt Date: 20041014
  Transmission Date: 20050328
  Serious: Yes (Other)
  Sender: FDA-Public Use
  Company Number: None

PATIENT
  Age: 51 Year
  Sex: Male
  Weight: 68.0396 kg

DRUGS (1)
  1. NOVANTRONE [Suspect]
     Indication: PROGRESSIVE MULTIPLE SCLEROSIS
     Dosage: 2106 MG Q 3 MONTHS IV
     Route: 042
     Dates: start: 20031118, end: 20040922

REACTIONS (2)
  - INJECTION SITE DISCOLOURATION [None]
  - VEIN DISCOLOURATION [None]
